FAERS Safety Report 4951665-7 (Version None)
Quarter: 2006Q1

REPORT INFORMATION
  Report Type: 
  Country: None (occurrence: None)
  Receive Date: 20060320
  Receipt Date: 20060302
  Transmission Date: 20060701
  Serious: Yes (Hospitalization)
  Sender: FDA-Public Use
  Company Number: 223046

PATIENT
  Age: 67 Year
  Sex: Male
  Weight: 92 kg

DRUGS (5)
  1. AVASTIN [Suspect]
     Indication: COLON CANCER
     Dosage: 687.5 MG, Q3W, INTRAVENOUS
     Route: 042
     Dates: start: 20060109, end: 20060224
  2. CAPECITABINE (CAPECITABINE) [Suspect]
     Indication: COLON CANCER
     Dosage: 2000 MG, BID, ORAL
     Route: 048
     Dates: start: 20060109
  3. OXALIPLATIN (OXALIPLATIN) [Suspect]
     Indication: COLON CANCER
     Dosage: 260 MG, Q3W, INTRAVENOUS
     Route: 042
     Dates: start: 20060109
  4. RAMIPRIL [Concomitant]
  5. BISOPROLOL (BISOPROLOL) [Concomitant]

REACTIONS (3)
  - BLOOD PRESSURE INCREASED [None]
  - CONVULSION [None]
  - DIZZINESS [None]
